FAERS Safety Report 8037250-1 (Version None)
Quarter: 2012Q1

REPORT INFORMATION
  Report Type: 
  Country: None (occurrence: None)
  Receive Date: 20120111
  Receipt Date: 20120103
  Transmission Date: 20120608
  Serious: Yes (Disabling)
  Sender: FDA-Public Use
  Company Number: DE-PFIZER INC-2012005867

PATIENT
  Sex: Male

DRUGS (1)
  1. RAMIPRIL [Suspect]
     Indication: PRODUCT USED FOR UNKNOWN INDICATION
     Dosage: UNK
     Route: 048

REACTIONS (4)
  - BALANCE DISORDER [None]
  - GAIT DISTURBANCE [None]
  - QUALITY OF LIFE DECREASED [None]
  - PARAESTHESIA [None]
